FAERS Safety Report 10222350 (Version 1)
Quarter: 2014Q2

REPORT INFORMATION
  Report Type: Report from Study
  Country: ES (occurrence: ES)
  Receive Date: 20140606
  Receipt Date: 20140606
  Transmission Date: 20141212
  Serious: Yes (Other)
  Sender: FDA-Public Use
  Company Number: ES-BAYER-2014-080478

PATIENT
  Age: 86 Year
  Sex: Male

DRUGS (2)
  1. ADIRO 100 [Suspect]
     Indication: MYOCARDIAL ISCHAEMIA
     Dosage: 100 MG, QD
     Route: 065
     Dates: start: 2014, end: 20140425
  2. TIKLID [Suspect]
     Indication: MYOCARDIAL ISCHAEMIA
     Dosage: 250 MG, QD
     Route: 065
     Dates: start: 2014, end: 20140425

REACTIONS (1)
  - Iron deficiency anaemia [Recovering/Resolving]
